FAERS Safety Report 17870561 (Version 4)
Quarter: 2024Q4

REPORT INFORMATION
  Report Type: Spontaneous
  Country: US (occurrence: US)
  Receive Date: 20200608
  Receipt Date: 20241107
  Transmission Date: 20250115
  Serious: No
  Sender: PFIZER
  Company Number: US-PFIZER INC-2020222387

PATIENT
  Age: 43 Year
  Sex: Female

DRUGS (5)
  1. MORPHINE SULFATE [Suspect]
     Active Substance: MORPHINE SULFATE
     Dosage: UNK
  2. TETANUS AND DIPHTHERIA TOXOIDS ADSORBED (VACCINE) [Suspect]
     Active Substance: CLOSTRIDIUM TETANI\CLOSTRIDIUM TETANI TOXOID ANTIGEN (FORMALDEHYDE INACTIVATED)\CORYNEBACTERIUM DIPH
     Dosage: UNK
  3. CODEINE PHOSPHATE [Suspect]
     Active Substance: CODEINE PHOSPHATE
     Dosage: UNK
  4. ASPIRIN [Suspect]
     Active Substance: ASPIRIN
     Dosage: UNK
  5. DURLAZA [Suspect]
     Active Substance: ASPIRIN
     Dosage: UNK

REACTIONS (1)
  - Drug hypersensitivity [Unknown]
